FAERS Safety Report 15515130 (Version 2)
Quarter: 2018Q4

REPORT INFORMATION
  Report Type: Report from Study
  Country: None (occurrence: US)
  Receive Date: 20181017
  Receipt Date: 20181023
  Transmission Date: 20190205
  Serious: Yes (Other)
  Sender: FDA-Public Use
  Company Number: US-ABBVIE-18K-163-2268841-00

PATIENT
  Age: 42 Year
  Sex: Male
  Weight: 99.88 kg

DRUGS (8)
  1. HUMIRA [Suspect]
     Active Substance: ADALIMUMAB
     Route: 058
     Dates: end: 201806
  2. MELOXICAM. [Concomitant]
     Active Substance: MELOXICAM
     Indication: RHEUMATOID ARTHRITIS
  3. PROBIOTIC [Concomitant]
     Active Substance: PROBIOTICS NOS
     Indication: DYSPEPSIA
  4. METHOTREXATE. [Suspect]
     Active Substance: METHOTREXATE
     Indication: RHEUMATOID ARTHRITIS
     Route: 048
     Dates: start: 2001, end: 201806
  5. FOLIC ACID. [Concomitant]
     Active Substance: FOLIC ACID
     Indication: ORAL PAIN
  6. HUMIRA [Suspect]
     Active Substance: ADALIMUMAB
     Indication: RHEUMATOID ARTHRITIS
     Route: 058
     Dates: start: 2003
  7. HUMIRA [Suspect]
     Active Substance: ADALIMUMAB
     Route: 058
     Dates: start: 201807
  8. METHOTREXATE. [Suspect]
     Active Substance: METHOTREXATE
     Route: 048
     Dates: start: 201808

REACTIONS (11)
  - Rheumatoid arthritis [Unknown]
  - Tonsillar hypertrophy [Recovered/Resolved]
  - Sensitivity to weather change [Unknown]
  - Musculoskeletal pain [Unknown]
  - Dysphagia [Recovered/Resolved]
  - Back pain [Unknown]
  - Drug ineffective [Unknown]
  - Lung infection [Unknown]
  - Pain in extremity [Unknown]
  - Arthralgia [Unknown]
  - Nasopharyngitis [Not Recovered/Not Resolved]

NARRATIVE: CASE EVENT DATE: 2002
